FAERS Safety Report 8883904 (Version 2)
Quarter: 2013Q1

REPORT INFORMATION
  Report Type: Spontaneous
  Country: US (occurrence: US)
  Receive Date: 20121102
  Receipt Date: 20130314
  Transmission Date: 20140127
  Serious: No
  Sender: FDA-Public Use
  Company Number: US-ASTRAZENECA-2012SE10490

PATIENT
  Age: 64 Year
  Sex: Female

DRUGS (5)
  1. ARIMIDEX [Suspect]
     Route: 048
  2. SYMBICORT PMDI [Suspect]
     Route: 055
  3. NEXIUM [Suspect]
     Route: 048
  4. TOPROL XL [Suspect]
     Route: 048
  5. CRESTOR [Suspect]
     Route: 048

REACTIONS (2)
  - Otorrhoea [Unknown]
  - Diarrhoea [Unknown]
